FAERS Safety Report 4631394-X (Version None)
Quarter: 2005Q2

REPORT INFORMATION
  Report Type: 
  Country: None (occurrence: None)
  Receive Date: 20050407
  Receipt Date: 20050325
  Transmission Date: 20051028
  Serious: Yes (Hospitalization)
  Sender: FDA-Public Use
  Company Number: PERC20050020

PATIENT
  Age: 72 Year
  Sex: Male

DRUGS (3)
  1. PERCOCET [Suspect]
     Indication: POST PROCEDURAL PAIN
     Dosage: PO
     Route: 048
     Dates: start: 20050302, end: 20050307
  2. DABIGATRAN ETEXILATE     BOEHRINGER [Suspect]
     Dates: start: 20050302
  3. ENOXAPARIN SODIUM [Suspect]
     Dates: start: 20050302

REACTIONS (2)
  - ABDOMINAL DISTENSION [None]
  - INTESTINAL HYPOMOTILITY [None]
